FAERS Safety Report 5716436-2 (Version None)
Quarter: 2008Q2

REPORT INFORMATION
  Report Type: 
  Country: None (occurrence: None)
  Receive Date: 20080424
  Receipt Date: 20080417
  Transmission Date: 20081010
  Serious: Yes (Hospitalization, Other)
  Sender: FDA-Public Use
  Company Number: SI-AVENTIS-200813315GDDC

PATIENT
  Age: 53 Year
  Sex: Male

DRUGS (3)
  1. RIFAMPICIN [Suspect]
     Route: 048
  2. VANCOMYCIN [Concomitant]
     Dosage: DOSE: VARIOUS
  3. ERYTHROPOETIN [Concomitant]

REACTIONS (1)
  - APLASIA PURE RED CELL [None]
